FAERS Safety Report 8559157-3 (Version None)
Quarter: 2012Q3

REPORT INFORMATION
  Report Type: 
  Country: None (occurrence: None)
  Receive Date: 20120802
  Receipt Date: 20120723
  Transmission Date: 20120928
  Serious: Yes (Hospitalization)
  Sender: FDA-Public Use
  Company Number: US-009507513-1207USA009964

PATIENT

DRUGS (10)
  1. COCA [Suspect]
     Dosage: UNK
  2. FOSINOPRIL SODIUM [Suspect]
  3. LITHIUM CARBONATE [Suspect]
     Dosage: 900 MG, UNK
  4. LANTUS [Concomitant]
     Route: 058
  5. ASPIRIN [Suspect]
  6. INSULIN [Concomitant]
     Route: 058
  7. ZOCOR [Suspect]
     Route: 048
  8. LITHIUM CARBONATE [Suspect]
     Dosage: 1125 MG, UNK
  9. AMLODIPINE [Suspect]
     Dosage: UNK MG, UNK
  10. METOPROLOL TARTRATE [Suspect]

REACTIONS (2)
  - ABDOMINAL PAIN UPPER [None]
  - ANTIPSYCHOTIC DRUG LEVEL BELOW THERAPEUTIC [None]
